FAERS Safety Report 6473175-0 (Version None)
Quarter: 2009Q4

REPORT INFORMATION
  Report Type: 
  Country: None (occurrence: None)
  Receive Date: 20091204
  Receipt Date: 20080904
  Transmission Date: 20100525
  Serious: Yes (Hospitalization)
  Sender: FDA-Public Use
  Company Number: JP-ELI_LILLY_AND_COMPANY-JP200809002701

PATIENT
  Sex: Male
  Weight: 55 kg

DRUGS (7)
  1. PEMETREXED [Suspect]
     Indication: PLEURAL MESOTHELIOMA MALIGNANT
     Dosage: 770 MG, OTHER
     Route: 042
     Dates: start: 20080719, end: 20080719
  2. CISPLATIN [Suspect]
     Indication: PLEURAL MESOTHELIOMA MALIGNANT
     Dosage: 115 MG, OTHER
     Route: 042
     Dates: start: 20080719, end: 20080719
  3. PANVITAN [Concomitant]
     Dosage: 1 G, DAILY (1/D)
     Route: 048
     Dates: start: 20070711, end: 20070725
  4. METHYCOBAL [Concomitant]
     Dosage: 1 MG, OTHER
     Route: 030
     Dates: start: 20070711, end: 20070711
  5. SOLDEM 3A [Concomitant]
     Indication: PROPHYLAXIS
     Dosage: 1000 ML, DAILY (1/D)
     Route: 042
     Dates: start: 20070718, end: 20070723
  6. MORPHINE HYDROCHLORIDE [Concomitant]
     Indication: CANCER PAIN
     Dosage: 10 MG, DAILY (1/D)
     Route: 042
     Dates: start: 20070720, end: 20070722
  7. FENTANYL [Concomitant]
     Indication: CANCER PAIN
     Dosage: 0.8 MG, DAILY (1/D)
     Route: 042
     Dates: start: 20070722, end: 20070806

REACTIONS (4)
  - DECREASED APPETITE [None]
  - HYPOCHLORAEMIA [None]
  - HYPONATRAEMIA [None]
  - VOMITING [None]
